FAERS Safety Report 4893785-1 (Version None)
Quarter: 2006Q1

REPORT INFORMATION
  Report Type: 
  Country: None (occurrence: None)
  Receive Date: 20060127
  Receipt Date: 20060116
  Transmission Date: 20060701
  Serious: Yes (Hospitalization)
  Sender: FDA-Public Use
  Company Number: 2006SE00326

PATIENT
  Age: 35 Year
  Sex: Female

DRUGS (5)
  1. XYLOCAIN SOLUTION [Suspect]
     Indication: PSORIATIC ARTHROPATHY
     Route: 014
     Dates: start: 20050829, end: 20050829
  2. LEDERSPAN [Suspect]
     Indication: PSORIATIC ARTHROPATHY
     Route: 014
     Dates: start: 20050829, end: 20050829
  3. DEPO-MEDROL [Concomitant]
     Dates: start: 20050829, end: 20050829
  4. SALAZOPYRIN EN [Concomitant]
  5. NOBLIGAN RETARD [Concomitant]

REACTIONS (4)
  - ARTHRITIS [None]
  - INJECTION SITE ERYTHEMA [None]
  - LOCALISED OEDEMA [None]
  - PYREXIA [None]
